FAERS Safety Report 7464631-7 (Version None)
Quarter: 2011Q2

REPORT INFORMATION
  Report Type: 
  Country: None (occurrence: None)
  Receive Date: 20110509
  Receipt Date: 20100930
  Transmission Date: 20111010
  Serious: No
  Sender: FDA-Public Use
  Company Number: US-BAYER-201037846NA

PATIENT
  Sex: Female

DRUGS (1)
  1. YAZ [Suspect]

REACTIONS (6)
  - MENSTRUATION IRREGULAR [None]
  - FOOD CRAVING [None]
  - SOMATOFORM DISORDER PREGNANCY [None]
  - HOT FLUSH [None]
  - ABDOMINAL PAIN LOWER [None]
  - FEELING ABNORMAL [None]
